FAERS Safety Report 19901857 (Version 1)
Quarter: 2021Q3

REPORT INFORMATION
  Report Type: Spontaneous
  Country: IN (occurrence: IN)
  Receive Date: 20210930
  Receipt Date: 20210930
  Transmission Date: 20211014
  Serious: Yes (Other)
  Sender: FDA-Public Use
  Company Number: IN-CIPLA LTD.-2021IN06388

PATIENT

DRUGS (13)
  1. NEVIRAPINE. [Concomitant]
     Active Substance: NEVIRAPINE
     Indication: HIV INFECTION
     Dosage: 600 MILLIGRAM, UNK
     Route: 065
  2. OLANZAPINE. [Interacting]
     Active Substance: OLANZAPINE
     Dosage: 10 MG, UNK
     Route: 065
  3. ESCITALOPRAM [Suspect]
     Active Substance: ESCITALOPRAM OXALATE
     Dosage: 10 MG, UNK
     Route: 065
  4. EFAVIRENZ. [Interacting]
     Active Substance: EFAVIRENZ
     Indication: HIV INFECTION
     Dosage: 600 MILLIGRAM, UNK
     Route: 065
  5. STAVUDINE. [Concomitant]
     Active Substance: STAVUDINE
     Indication: HIV INFECTION
     Dosage: 20 MG
     Route: 065
  6. ESCITALOPRAM [Suspect]
     Active Substance: ESCITALOPRAM OXALATE
     Indication: DEPRESSION
     Dosage: 5 MG, UNK
     Route: 065
  7. NEVIRAPINE. [Concomitant]
     Active Substance: NEVIRAPINE
     Dosage: UP TO 600 MG, UNK
     Route: 065
  8. LAMIVUDINE. [Concomitant]
     Active Substance: LAMIVUDINE
     Dosage: UP TO 300 MG, UNK
     Route: 065
  9. ZIDOVUDINE. [Concomitant]
     Active Substance: ZIDOVUDINE
     Indication: HIV INFECTION
     Dosage: 300 MG
     Route: 065
  10. OLANZAPINE. [Interacting]
     Active Substance: OLANZAPINE
     Indication: BIPOLAR DISORDER
     Dosage: 5 MG, UNK
     Route: 065
  11. LAMIVUDINE. [Concomitant]
     Active Substance: LAMIVUDINE
     Indication: HIV INFECTION
     Dosage: 150 TO 300 MILLIGRAM
     Route: 065
  12. TENOFOVIR [Concomitant]
     Active Substance: TENOFOVIR
     Indication: HIV INFECTION
     Dosage: 300 MG
     Route: 065
  13. ESCITALOPRAM [Suspect]
     Active Substance: ESCITALOPRAM OXALATE
     Dosage: 20 MG, UNK
     Route: 065

REACTIONS (7)
  - Drug interaction [Unknown]
  - Irritability [Unknown]
  - Insomnia [Unknown]
  - Logorrhoea [Unknown]
  - Depression [Recovering/Resolving]
  - Therapy non-responder [Unknown]
  - Euphoric mood [Unknown]
